FAERS Safety Report 5367648-1 (Version None)
Quarter: 2007Q2

REPORT INFORMATION
  Report Type: 
  Country: None (occurrence: None)
  Receive Date: 20070622
  Receipt Date: 20070215
  Transmission Date: 20071010
  Serious: No
  Sender: FDA-Public Use
  Company Number: US-ASTRAZENECA-2007UW03082

PATIENT
  Age: 77 Year
  Sex: Male
  Weight: 70.8 kg

DRUGS (6)
  1. PULMICORT [Suspect]
     Indication: DYSPNOEA
     Route: 055
     Dates: start: 20060101
  2. DUONEB [Suspect]
     Dates: start: 20060101
  3. SEROQUEL [Concomitant]
  4. RESTORIL [Concomitant]
  5. XANAX [Concomitant]
  6. RANITIDINE HYDROCHLORIDE [Concomitant]

REACTIONS (2)
  - DYSPNOEA [None]
  - INSOMNIA [None]
